FAERS Safety Report 6365205-1 (Version None)
Quarter: 2009Q3

REPORT INFORMATION
  Report Type: 
  Country: None (occurrence: None)
  Receive Date: 20090919
  Receipt Date: 20090810
  Transmission Date: 20100115
  Serious: No
  Sender: FDA-Public Use
  Company Number: US-ABBOTT-09P-163-0590735-00

PATIENT
  Weight: 58.112 kg

DRUGS (9)
  1. HUMIRA [Suspect]
     Indication: DRUG USE FOR UNKNOWN INDICATION
     Dosage: UNKNOWN
     Dates: start: 20080101
  2. METHOTREXATE [Concomitant]
     Indication: RHEUMATOID ARTHRITIS
  3. OXANOL [Concomitant]
     Indication: RHEUMATOID ARTHRITIS
     Dosage: NOT REPORTED
  4. AVALIDE [Concomitant]
     Indication: HYPERTENSION
     Dosage: 300/25 MG
  5. AMLODIPINE [Concomitant]
     Indication: HYPERTENSION
  6. LIPITOR [Concomitant]
     Indication: BLOOD CHOLESTEROL
  7. LEVOXYL [Concomitant]
     Indication: HYPERTHYROIDISM
  8. STROVITE [Concomitant]
     Indication: MEDICAL DIET
  9. NAPROXEN [Concomitant]
     Indication: PAIN

REACTIONS (2)
  - CHOLELITHIASIS [None]
  - ELECTROCARDIOGRAM ABNORMAL [None]
